FAERS Safety Report 14699960 (Version 1)
Quarter: 2018Q1

REPORT INFORMATION
  Report Type: Spontaneous
  Country: GB (occurrence: GB)
  Receive Date: 20180330
  Receipt Date: 20180330
  Transmission Date: 20180509
  Serious: Yes (Other)
  Sender: FDA-Public Use
  Company Number: GB-TORRENT-00016340

PATIENT
  Age: 66 Year
  Sex: Female
  Weight: 85 kg

DRUGS (7)
  1. LAXIDO [Concomitant]
     Active Substance: POLYETHYLENE GLYCOL 3350\POTASSIUM CHLORIDE\SODIUM BICARBONATE\SODIUM CHLORIDE
     Indication: PRODUCT USED FOR UNKNOWN INDICATION
     Dosage: ONE OR TWO DAILY
     Dates: start: 20170328
  2. SINEMET CR [Suspect]
     Active Substance: CARBIDOPA\LEVODOPA
     Indication: PRODUCT USED FOR UNKNOWN INDICATION
     Dosage: ONE AT 08,11,14,17,20,23
     Dates: start: 20170328
  3. PNEUMOCOCCAL POLYSACCHARIDE VACCINE [Interacting]
     Active Substance: PNEUMOCOCCAL VACCINE POLYVALENT
     Indication: PNEUMOCOCCAL IMMUNISATION
     Route: 030
     Dates: start: 20170930, end: 20170930
  4. AMITRIPTYLINE HYDROCHLORIDE. [Concomitant]
     Active Substance: AMITRIPTYLINE HYDROCHLORIDE
     Indication: PRODUCT USED FOR UNKNOWN INDICATION
     Dosage: TAKE ONE AS DIRECTED
     Dates: start: 20170328
  5. ADCAL [Concomitant]
     Active Substance: CALCIUM CARBONATE
     Indication: PRODUCT USED FOR UNKNOWN INDICATION
     Dates: start: 20170328
  6. PRAMIPEXOLE. [Interacting]
     Active Substance: PRAMIPEXOLE
     Indication: PRODUCT USED FOR UNKNOWN INDICATION
     Dates: start: 20170328
  7. CO-BENELDOPA [Interacting]
     Active Substance: BENSERAZIDE HYDROCHLORIDE\LEVODOPA
     Indication: PRODUCT USED FOR UNKNOWN INDICATION
     Dosage: TAKE 1-2 ON WAKING AND 1 WHEN REQUIRED
     Dates: start: 20170328

REACTIONS (8)
  - Inhibitory drug interaction [Recovered/Resolved]
  - Fatigue [Recovered/Resolved]
  - Vaccination site pruritus [Recovered/Resolved]
  - Peripheral swelling [Unknown]
  - Vaccination site oedema [Recovered/Resolved]
  - Vaccination site erythema [Recovered/Resolved]
  - Vaccination site pain [Recovered/Resolved]
  - Vaccination site bruising [Recovered/Resolved]

NARRATIVE: CASE EVENT DATE: 20170930
